FAERS Safety Report 9349827 (Version 2)
Quarter: 2013Q3

REPORT INFORMATION
  Report Type: Spontaneous
  Country: US (occurrence: None)
  Receive Date: 20130611
  Receipt Date: 20130806
  Transmission Date: 20140515
  Serious: Yes (Hospitalization, Other)
  Sender: FDA-Public Use
  Company Number: 2013P1006923

PATIENT
  Age: 50 Year
  Sex: Female

DRUGS (4)
  1. INFUMORPH [Suspect]
     Indication: PAIN
     Route: 037
     Dates: start: 19981222, end: 201304
  2. ACETAMINOPHEN [Concomitant]
  3. FISH OIL [Concomitant]
  4. IBUPROFEN [Concomitant]

REACTIONS (2)
  - Cerebrospinal fluid leakage [None]
  - Medical device complication [None]
